FAERS Safety Report 8406786-3 (Version None)
Quarter: 2012Q2

REPORT INFORMATION
  Report Type: 
  Country: None (occurrence: None)
  Receive Date: 20120604
  Receipt Date: 20120531
  Transmission Date: 20120825
  Serious: Yes (Hospitalization)
  Sender: FDA-Public Use
  Company Number: AU-PFIZER INC-2012130561

PATIENT
  Sex: Female

DRUGS (10)
  1. PREDNISOLONE [Concomitant]
  2. CELEBREX [Suspect]
     Dosage: UNK
  3. VARENICLINE TARTRATE [Concomitant]
  4. KEFLEX [Concomitant]
  5. NEXIUM [Concomitant]
  6. LASIX [Concomitant]
  7. DURO K [Concomitant]
  8. VENTOLIN [Concomitant]
  9. PRAMIN [Concomitant]
  10. FLUTICASONE PROPIONATE/SALMETEROL [Concomitant]

REACTIONS (1)
  - CHRONIC OBSTRUCTIVE PULMONARY DISEASE [None]
